FAERS Safety Report 5097974-5 (Version None)
Quarter: 2006Q3

REPORT INFORMATION
  Report Type: 
  Country: None (occurrence: None)
  Receive Date: 20060905
  Receipt Date: 20060905
  Transmission Date: 20061208
  Serious: Yes (Death)
  Sender: FDA-Public Use
  Company Number: None

PATIENT
  Sex: Male
  Weight: 86.1834 kg

DRUGS (1)
  1. EFFEXOR [Suspect]
     Dosage: 150 MG   NIGHTLY
     Dates: start: 20040101, end: 20060326

REACTIONS (11)
  - ABNORMAL BEHAVIOUR [None]
  - CARDIOMYOPATHY [None]
  - COMPLETED SUICIDE [None]
  - FEELING ABNORMAL [None]
  - GUN SHOT WOUND [None]
  - HOMICIDAL IDEATION [None]
  - MENTAL IMPAIRMENT [None]
  - PERSONALITY CHANGE [None]
  - SUICIDAL IDEATION [None]
  - VICTIM OF HOMICIDE [None]
  - VIRAL INFECTION [None]
